FAERS Safety Report 8238640-4 (Version None)
Quarter: 2012Q1

REPORT INFORMATION
  Report Type: 
  Country: None (occurrence: None)
  Receive Date: 20120327
  Receipt Date: 20120319
  Transmission Date: 20120608
  Serious: Yes (Death, Hospitalization, Other)
  Sender: FDA-Public Use
  Company Number: US-CELGENEUS-163-21880-11113330

PATIENT
  Sex: Female

DRUGS (7)
  1. REVLIMID [Suspect]
     Indication: LYMPHOMA
     Dosage: 5 MILLIGRAM
     Route: 048
     Dates: start: 20110920, end: 20110101
  2. METOPROLOL SUCCINATE [Concomitant]
     Indication: HYPERTENSION
     Route: 065
  3. REVLIMID [Suspect]
     Dosage: 10 MILLIGRAM
     Route: 048
     Dates: start: 20111129, end: 20111224
  4. PEPCID [Concomitant]
     Route: 048
     Dates: start: 20111126
  5. ZANTAC [Concomitant]
     Route: 065
  6. ZOLPIDEM [Concomitant]
     Indication: INSOMNIA
     Dosage: 50
     Route: 048
     Dates: start: 20111126
  7. AMLODIPINE [Concomitant]
     Indication: HYPERTENSION
     Route: 065

REACTIONS (4)
  - DRUG INEFFECTIVE [None]
  - LYMPHOMA [None]
  - THROMBOCYTOPENIA [None]
  - SEPSIS [None]
